FAERS Safety Report 9486455 (Version 1)
Quarter: 2013Q3

REPORT INFORMATION
  Report Type: Spontaneous
  Country: US (occurrence: US)
  Receive Date: 20130829
  Receipt Date: 20130829
  Transmission Date: 20140515
  Serious: Yes (Other)
  Sender: FDA-Public Use
  Company Number: US-BAYER-2013-102998

PATIENT
  Age: 59 Year
  Sex: Female

DRUGS (5)
  1. YASMIN [Suspect]
  2. YAZ [Suspect]
  3. HYZAAR [Concomitant]
  4. ALLEGRA [Concomitant]
  5. AVONEX [Concomitant]

REACTIONS (1)
  - Retinal vein occlusion [None]
